FAERS Safety Report 13580568 (Version 1)
Quarter: 2017Q2

REPORT INFORMATION
  Report Type: Spontaneous
  Country: RU (occurrence: RU)
  Receive Date: 20170525
  Receipt Date: 20170525
  Transmission Date: 20170830
  Serious: Yes (Hospitalization)
  Sender: FDA-Public Use
  Company Number: RU-ASTRAZENECA-2017SE54460

PATIENT
  Age: 63 Year
  Sex: Female
  Weight: 70 kg

DRUGS (3)
  1. BRILINTA [Suspect]
     Active Substance: TICAGRELOR
     Indication: MYOCARDIAL INFARCTION
     Route: 048
     Dates: start: 201609, end: 201705
  2. BISOPROLOL [Concomitant]
     Active Substance: BISOPROLOL
  3. THROMBO ASS [Concomitant]
     Active Substance: ASPIRIN

REACTIONS (5)
  - Loss of consciousness [Unknown]
  - Nausea [Unknown]
  - Dyspnoea exertional [Recovered/Resolved]
  - Chest pain [Unknown]
  - Contusion [Recovering/Resolving]

NARRATIVE: CASE EVENT DATE: 201609
